FAERS Safety Report 7424232-3 (Version None)
Quarter: 2011Q2

REPORT INFORMATION
  Report Type: 
  Country: None (occurrence: None)
  Receive Date: 20110419
  Receipt Date: 20091122
  Transmission Date: 20111010
  Serious: Yes (Death, Other)
  Sender: FDA-Public Use
  Company Number: US-BAYER-200939935NA

PATIENT
  Age: 65 Year
  Sex: Female
  Weight: 72.562 kg

DRUGS (11)
  1. SUFENTA PRESERVATIVE FREE [Concomitant]
     Dosage: UNK
     Route: 042
     Dates: start: 20020510, end: 20020510
  2. TRASYLOL [Suspect]
     Indication: PRODUCT USED FOR UNKNOWN INDICATION
     Dosage: UNK
     Route: 042
     Dates: start: 20021005
  3. ZESTORETIC [Concomitant]
     Route: 048
  4. FENTANYL [Concomitant]
     Dosage: MULTIPLE DOSES, CONTINUED IN ICU
     Route: 042
     Dates: start: 20020510
  5. ETOMIDATE [Concomitant]
     Dosage: 12 MG, UNK
     Dates: start: 20020510, end: 20020510
  6. PROPOFOL [Concomitant]
     Dosage: 30MCG/KG/MIN, CONTINUED IN ICU
     Route: 042
     Dates: start: 20020510
  7. NEO-SYNEPHRINOL [Concomitant]
     Dosage: UNK
     Route: 042
     Dates: start: 20020510, end: 20020510
  8. CALCIUM CHLORIDE [Concomitant]
     Dosage: UNK
     Route: 042
     Dates: start: 20020510, end: 20020510
  9. AMICAR [Concomitant]
     Dosage: 5 G BOLUS, 24CC/HR
     Route: 042
     Dates: start: 20020510, end: 20020510
  10. VERSED [Concomitant]
     Dosage: 9 MG, CONTINUED IN ICU
     Route: 042
     Dates: start: 20020510
  11. NITROGLYCERIN [Concomitant]
     Dosage: 0.3-0.5 DRIP, CONTINUED IN ICU
     Route: 042
     Dates: start: 20020510

REACTIONS (13)
  - MULTI-ORGAN FAILURE [None]
  - ANXIETY [None]
  - EMOTIONAL DISTRESS [None]
  - ANHEDONIA [None]
  - DEATH [None]
  - RENAL FAILURE [None]
  - PAIN [None]
  - STRESS [None]
  - RENAL IMPAIRMENT [None]
  - RENAL INJURY [None]
  - UNEVALUABLE EVENT [None]
  - FEAR [None]
  - INJURY [None]
